FAERS Safety Report 9247724 (Version 1)
Quarter: 2013Q1

REPORT INFORMATION
  Report Type: Spontaneous
  Country: US (occurrence: None)
  Receive Date: 20121130
  Receipt Date: 20121130
  Transmission Date: 20140127
  Serious: Yes (Other)
  Sender: FDA-Public Use
  Company Number: 1201USA00816

PATIENT
  Age: 71 Year
  Sex: Female
  Weight: 63.5 kg

DRUGS (6)
  1. FOSAMAX [Suspect]
     Indication: OSTEOPENIA
     Dosage: ORAL
     Route: 048
     Dates: start: 1998
  2. CALCIUM (UNSPECIFIED) (CALCIUM (UNSPECIFIED)) [Concomitant]
  3. VITAMIN D (UNSPECIFIED) (VITAMIN D)) [Concomitant]
  4. SYNTHROID (LEVOTHYROXINE SODIUM) [Concomitant]
  5. VITAMIN E (VITAMIN E) [Concomitant]
  6. ACTONEL (RISEDRONATE SODIUM) [Concomitant]

REACTIONS (65)
  - Osteonecrosis of jaw [None]
  - Oral disorder [None]
  - Pyogenic granuloma [None]
  - Jaw disorder [None]
  - Osteoarthritis [None]
  - Bursitis [None]
  - Nerve compression [None]
  - Rheumatoid arthritis [None]
  - Rash vesicular [None]
  - Oral herpes [None]
  - Actinic keratosis [None]
  - Head injury [None]
  - Ecchymosis [None]
  - Contusion [None]
  - Sinusitis [None]
  - Emotional distress [None]
  - Vitamin B12 deficiency [None]
  - Atrophy [None]
  - Cystocele [None]
  - Drug intolerance [None]
  - Depression [None]
  - Rhinitis [None]
  - Macrocytosis [None]
  - Blood pressure inadequately controlled [None]
  - Bronchitis [None]
  - Restless legs syndrome [None]
  - Urinary tract infection [None]
  - Tachycardia [None]
  - Paraesthesia [None]
  - Anaemia of chronic disease [None]
  - Hypothyroidism [None]
  - Glaucoma [None]
  - Hypercholesterolaemia [None]
  - Hyperlipidaemia [None]
  - Spinal osteoarthritis [None]
  - Lumbar spinal stenosis [None]
  - Hypertension [None]
  - Bone loss [None]
  - Fall [None]
  - Osteoporosis [None]
  - Eczema [None]
  - Influenza [None]
  - Dental caries [None]
  - Stomatitis [None]
  - Bone disorder [None]
  - Weight decreased [None]
  - Arthritis [None]
  - Granuloma [None]
  - Gingival disorder [None]
  - Oral disorder [None]
  - Tooth fracture [None]
  - Fatigue [None]
  - Back disorder [None]
  - Drug ineffective [None]
  - Gingival ulceration [None]
  - Arthralgia [None]
  - Headache [None]
  - Malaise [None]
  - Nausea [None]
  - Vertigo [None]
  - Asthenia [None]
  - Alopecia [None]
  - Aphthous stomatitis [None]
  - Drug hypersensitivity [None]
  - Muscle spasms [None]
